FAERS Safety Report 6094043-2 (Version None)
Quarter: 2009Q1

REPORT INFORMATION
  Report Type: 
  Country: None (occurrence: None)
  Receive Date: 20090224
  Receipt Date: 20090224
  Transmission Date: 20090719
  Serious: Yes (Hospitalization, Other)
  Sender: FDA-Public Use
  Company Number: None

PATIENT
  Age: 49 Year
  Sex: Female
  Weight: 49.8957 kg

DRUGS (5)
  1. LAPATINIB, 250 MG GLAXOSMITHLINE [Suspect]
     Indication: BREAST CANCER
     Dosage: 1000 MG PO QD
     Route: 048
     Dates: start: 20081022, end: 20090114
  2. DARVOCET [Concomitant]
  3. HERCEPTIN [Concomitant]
  4. ZOLADEX [Concomitant]
  5. FEMARA [Concomitant]

REACTIONS (2)
  - AUTOIMMUNE HEPATITIS [None]
  - HEPATIC FAILURE [None]
